FAERS Safety Report 7641326-8 (Version None)
Quarter: 2011Q3

REPORT INFORMATION
  Report Type: 
  Country: None (occurrence: None)
  Receive Date: 20110728
  Receipt Date: 20110701
  Transmission Date: 20111222
  Serious: No
  Sender: FDA-Public Use
  Company Number: US-BAYER-2011-058875

PATIENT
  Age: 44 Year
  Sex: Female
  Weight: 79 kg

DRUGS (2)
  1. ORTHO TRI-CYCLEN [Concomitant]
  2. ALEVE (CAPLET) [Suspect]
     Dosage: 1 DF, TID
     Route: 048
     Dates: start: 20110621, end: 20110630

REACTIONS (1)
  - DRUG INEFFECTIVE [None]
